FAERS Safety Report 10170470 (Version 1)
Quarter: 2014Q2

REPORT INFORMATION
  Report Type: Report from Study
  Country: US (occurrence: US)
  Receive Date: 20140513
  Receipt Date: 20140513
  Transmission Date: 20141212
  Serious: Yes (Hospitalization, Other)
  Sender: FDA-Public Use
  Company Number: PHEH2014US009414

PATIENT
  Age: 66 Year
  Sex: Female

DRUGS (2)
  1. ZORTRESS [Suspect]
     Indication: LIVER TRANSPLANT
     Dosage: 1MG, (TAKES ONE 0.5 MG IN MORNING AND ONE 0.5 MG IN NIGHT)
     Route: 048
  2. ZORTRESS [Suspect]
     Dosage: 1.5 MG, (TAKES TWO 0.5 MG IN MORNING AND ONE 0.5 MG IN NIGHT)
     Route: 048

REACTIONS (3)
  - Cerebrovascular accident [Unknown]
  - Blood cholesterol increased [Unknown]
  - Blood glucose increased [Unknown]
